FAERS Safety Report 5832246-X (Version None)
Quarter: 2008Q3

REPORT INFORMATION
  Report Type: 
  Country: None (occurrence: None)
  Receive Date: 20080731
  Receipt Date: 20080722
  Transmission Date: 20090109
  Serious: Yes (Death, Hospitalization)
  Sender: FDA-Public Use
  Company Number: T07-JPN-06341-01

PATIENT
  Age: 84 Year
  Sex: Female

DRUGS (7)
  1. MEMANTINE HCL [Suspect]
     Indication: DEMENTIA ALZHEIMER'S TYPE
     Dosage: 20 MG (20 MG,1 IN 1 D), ORAL
     Route: 048
     Dates: start: 20050927, end: 20071112
  2. DONEPEZIL HYDROCHLORIDE (DONEPEZIL HYDROCHLORIDE) (DONEPEZIL HYDROCHLO [Concomitant]
  3. PROPIVERINE (PROPIVERINE) (PROPIVERINE) [Concomitant]
  4. ANTIBIOTIC-RESISTANT LACTIC ACID BACTERIA [Concomitant]
  5. MAGNESIUM OXIDE (MAGNESIUM OXIDE) (MAGNESIUM OXIDE) [Concomitant]
  6. TRIMEBUTINE (TRIMEBUTINE) (TRIMEBUTINE) [Concomitant]
  7. GLYBURIDE [Concomitant]

REACTIONS (10)
  - BLOOD GLUCOSE INCREASED [None]
  - BLOOD UREA INCREASED [None]
  - CARBOHYDRATE ANTIGEN 19-9 INCREASED [None]
  - CHOLECYSTITIS [None]
  - CHOLELITHIASIS [None]
  - ENTERITIS INFECTIOUS [None]
  - FEMORAL NECK FRACTURE [None]
  - PNEUMONIA [None]
  - PNEUMONIA ASPIRATION [None]
  - SEPSIS [None]
